FAERS Safety Report 5313417-8 (Version None)
Quarter: 2007Q2

REPORT INFORMATION
  Report Type: 
  Country: None (occurrence: None)
  Receive Date: 20070501
  Receipt Date: 20070327
  Transmission Date: 20071010
  Serious: No
  Sender: FDA-Public Use
  Company Number: US-JNJFOC-20070306824

PATIENT
  Age: 11 Year
  Sex: Male

DRUGS (4)
  1. INVEGA [Suspect]
     Indication: BIPOLAR DISORDER
     Route: 048
  2. LAMICTAL [Concomitant]
     Route: 048
  3. BUSPAR [Concomitant]
     Route: 048
  4. ADDERALL 30 [Concomitant]
     Route: 048

REACTIONS (2)
  - MALAISE [None]
  - WEIGHT DECREASED [None]
